FAERS Safety Report 7385860-7 (Version None)
Quarter: 2011Q1

REPORT INFORMATION
  Report Type: 
  Country: None (occurrence: None)
  Receive Date: 20110301
  Receipt Date: 20100103
  Transmission Date: 20110831
  Serious: Yes (Disabling, Other)
  Sender: FDA-Public Use
  Company Number: ALA_00707_2010

PATIENT
  Sex: Female

DRUGS (3)
  1. REGLAN [Suspect]
     Indication: GASTROOESOPHAGEAL REFLUX DISEASE
     Dosage: (DF ORAL), (10 MG BID ORAL), (10 MG TID ORAL)
     Route: 048
     Dates: start: 20060401, end: 20080201
  2. REGLAN [Suspect]
     Indication: GASTROOESOPHAGEAL REFLUX DISEASE
     Dosage: (DF ORAL), (10 MG BID ORAL), (10 MG TID ORAL)
     Route: 048
     Dates: start: 19950101
  3. REGLAN [Suspect]
     Indication: GASTROOESOPHAGEAL REFLUX DISEASE
     Dosage: (DF ORAL), (10 MG BID ORAL), (10 MG TID ORAL)
     Route: 048
     Dates: start: 20010801, end: 20060101

REACTIONS (4)
  - DYSKINESIA [None]
  - INCORRECT DRUG ADMINISTRATION DURATION [None]
  - PARKINSONISM [None]
  - TREMOR [None]
